FAERS Safety Report 15325830 (Version 1)
Quarter: 2018Q3

REPORT INFORMATION
  Report Type: Spontaneous
  Country: US (occurrence: US)
  Receive Date: 20180822
  Receipt Date: 20180822
  Transmission Date: 20181010
  Serious: Yes (Death)
  Sender: FDA-Public Use
  Company Number: None

PATIENT
  Age: 60 Year
  Sex: Female
  Weight: 119.9 kg

DRUGS (22)
  1. ENOXAPARIN [Suspect]
     Active Substance: ENOXAPARIN
     Indication: FACTOR V LEIDEN MUTATION
     Route: 058
     Dates: start: 20180711, end: 20180713
  2. FERROUS SULFATE. [Concomitant]
     Active Substance: FERROUS SULFATE
     Dates: start: 20180628, end: 20180711
  3. PHENYTOIN. [Concomitant]
     Active Substance: PHENYTOIN
     Dates: start: 20180628, end: 20180716
  4. LEVOTHYROXINE. [Concomitant]
     Active Substance: LEVOTHYROXINE
     Dates: start: 20180628, end: 20180716
  5. POTASSIUM CHLORIDE. [Concomitant]
     Active Substance: POTASSIUM CHLORIDE
     Dates: start: 20180628, end: 20180715
  6. AMIODARONE [Concomitant]
     Active Substance: AMIODARONE
     Dates: start: 20180628, end: 20180716
  7. CARVEDIOL [Concomitant]
     Active Substance: CARVEDILOL
     Dates: start: 20180705, end: 20180715
  8. LEVETIRACETAM. [Concomitant]
     Active Substance: LEVETIRACETAM
     Dates: start: 20180628, end: 20180711
  9. SPIRONOLACTONE. [Concomitant]
     Active Substance: SPIRONOLACTONE
     Dates: start: 20180629
  10. DOCUSATE SODIUM. [Concomitant]
     Active Substance: DOCUSATE SODIUM
     Dates: start: 20180707, end: 20180710
  11. ENOXAPARIN [Suspect]
     Active Substance: ENOXAPARIN
     Indication: FACTOR V LEIDEN MUTATION
     Route: 058
     Dates: start: 20180628, end: 20180711
  12. ENOXAPARIN [Suspect]
     Active Substance: ENOXAPARIN
     Indication: DEEP VEIN THROMBOSIS
     Route: 058
     Dates: start: 20180711, end: 20180713
  13. ENOXAPARIN [Suspect]
     Active Substance: ENOXAPARIN
     Indication: DEEP VEIN THROMBOSIS
     Route: 058
     Dates: start: 20180628, end: 20180711
  14. VANCOMYCIN [Concomitant]
     Active Substance: VANCOMYCIN
     Dates: start: 20180702, end: 20180705
  15. FUROSEMIDE. [Concomitant]
     Active Substance: FUROSEMIDE
     Dates: start: 20180628, end: 20180629
  16. CYANOCOBALAMIN. [Concomitant]
     Active Substance: CYANOCOBALAMIN
     Dates: start: 20180628, end: 20180716
  17. POLYETHYLENE GLYCOL [Concomitant]
     Active Substance: POLYETHYLENE GLYCOLS
     Dates: start: 20180710, end: 20180716
  18. MAGNESIUM OXIDE. [Concomitant]
     Active Substance: MAGNESIUM OXIDE
     Dates: start: 20180629, end: 20180715
  19. METOLAZONE. [Concomitant]
     Active Substance: METOLAZONE
     Dates: start: 20180706, end: 20180715
  20. MIDODRINE [Concomitant]
     Active Substance: MIDODRINE
     Dates: start: 20180629, end: 20180716
  21. PROTAMINE [Concomitant]
     Active Substance: PROTAMINE
     Dates: start: 20180716, end: 20180716
  22. KCENTRA [Concomitant]
     Active Substance: COAGULATION FACTOR IX HUMAN\COAGULATION FACTOR VII HUMAN\COAGULATION FACTOR X HUMAN\PROTEIN C\PROTEIN S HUMAN\PROTHROMBIN
     Dates: start: 20180716, end: 20180716

REACTIONS (7)
  - Drug interaction [None]
  - Coagulation test abnormal [None]
  - Brain compression [None]
  - Weight increased [None]
  - Coma [None]
  - Subdural haemorrhage [None]
  - Epidural haemorrhage [None]

NARRATIVE: CASE EVENT DATE: 20180715
